FAERS Safety Report 11191619 (Version 1)
Quarter: 2015Q2

REPORT INFORMATION
  Report Type: Spontaneous
  Country: FR (occurrence: None)
  Receive Date: 20150612
  Receipt Date: 20150612
  Transmission Date: 20150821
  Serious: Yes (Death)
  Sender: FDA-Public Use
  Company Number: FR-2015VAL000376

PATIENT
  Age: 22 Year
  Sex: Female

DRUGS (5)
  1. VALACYCLOVIR HYDROCHLORIDE (VALACICLOVIR HYDROCHLORIDE) [Suspect]
     Active Substance: VALACYCLOVIR HYDROCHLORIDE
     Indication: LYMPHOPROLIFERATIVE DISORDER
  2. CARBAMAZEPINE (CARBAMAZEPINE) UNKNOWN [Suspect]
     Active Substance: CARBAMAZEPINE
     Indication: LYMPHOPROLIFERATIVE DISORDER
  3. SULFAMETHOXAZOLE AND TRIMETHOPRIM [Suspect]
     Active Substance: SULFAMETHOXAZOLE\TRIMETHOPRIM
     Indication: LYMPHOPROLIFERATIVE DISORDER
  4. SIROLIMUS (SIROLIMUS) [Suspect]
     Active Substance: SIROLIMUS
     Indication: LYMPHOPROLIFERATIVE DISORDER
  5. PREDNISONE (PREDNISONE) [Suspect]
     Active Substance: PREDNISONE
     Indication: LYMPHOPROLIFERATIVE DISORDER

REACTIONS (2)
  - Hepatic necrosis [None]
  - Drug-induced liver injury [None]
